FAERS Safety Report 9049651 (Version 1)
Quarter: 2013Q1

REPORT INFORMATION
  Report Type: Spontaneous
  Country: US (occurrence: US)
  Receive Date: 20130205
  Receipt Date: 20130205
  Transmission Date: 20140127
  Serious: No
  Sender: FDA-Public Use
  Company Number: US-009507513-1302USA001113

PATIENT
  Sex: Male

DRUGS (4)
  1. NASONEX [Suspect]
     Indication: SINUS DISORDER
     Dosage: TWO PUFFS EACH NOSTRIL
     Route: 045
     Dates: start: 201212
  2. LIPITOR [Concomitant]
  3. METFORMIN [Concomitant]
  4. ATENOLOL [Concomitant]

REACTIONS (2)
  - Dry mouth [Not Recovered/Not Resolved]
  - Sleep disorder [Not Recovered/Not Resolved]
